FAERS Safety Report 20974617 (Version 1)
Quarter: 2022Q2

REPORT INFORMATION
  Report Type: Spontaneous
  Country: US (occurrence: None)
  Receive Date: 20220616
  Receipt Date: 20220616
  Transmission Date: 20220720
  Serious: Yes (Life-Threatening, Hospitalization)
  Sender: FDA-Public Use
  Company Number: None

PATIENT
  Age: 81 Year
  Sex: Male

DRUGS (2)
  1. ROSUVASTATIN [Suspect]
     Active Substance: ROSUVASTATIN
  2. LENALIDOMIDE [Suspect]
     Active Substance: LENALIDOMIDE

REACTIONS (6)
  - Pain [None]
  - Asthenia [None]
  - Acute kidney injury [None]
  - Hypertransaminasaemia [None]
  - Blood creatine phosphokinase increased [None]
  - Rhabdomyolysis [None]

NARRATIVE: CASE EVENT DATE: 20220213
